FAERS Safety Report 9204740 (Version 2)
Quarter: 2013Q2

REPORT INFORMATION
  Report Type: Spontaneous
  Country: US (occurrence: None)
  Receive Date: 20130329
  Receipt Date: 20130508
  Transmission Date: 20140414
  Serious: Yes (Hospitalization)
  Sender: FDA-Public Use
  Company Number: UTC-030693

PATIENT
  Age: 53 Year
  Sex: Female
  Weight: 68.18 kg

DRUGS (3)
  1. REMODULIN [Suspect]
     Indication: PULMONARY ARTERIAL HYPERTENSION
     Dosage: 11.52 UG/KG (0.008 UG/KG, 1 IN 1MIN), INTRAVENOUS DRIP
     Route: 041
     Dates: start: 20130126
  2. REVATIO (SILDENAFIL CITRATE) [Concomitant]
  3. COUMADIN (WARFARIN SODIUM) [Concomitant]

REACTIONS (1)
  - Vomiting [None]
